FAERS Safety Report 4264542-4 (Version None)
Quarter: 2004Q1

REPORT INFORMATION
  Report Type: 
  Country: None (occurrence: None)
  Receive Date: 20040102
  Receipt Date: 20031229
  Transmission Date: 20041129
  Serious: Yes (Other)
  Sender: FDA-Public Use
  Company Number: 200326695BWH

PATIENT
  Age: 69 Year
  Sex: Male
  Weight: 90.7194 kg

DRUGS (10)
  1. LEVITRA [Suspect]
     Indication: SEXUAL DYSFUNCTION
     Dosage: 10 MG, ONCE, ORAL
     Route: 048
     Dates: start: 20031020
  2. VIAGRA [Concomitant]
  3. LIPITOR [Concomitant]
  4. LOTENSIN [Concomitant]
  5. FLOMAX ^BOEHRINGER INGELHEIM^ [Concomitant]
  6. SOTALOL HCL [Concomitant]
  7. ASPIRIN [Concomitant]
  8. AMIODARONE HCL [Concomitant]
  9. CARDIZEM [Concomitant]
  10. COUMADIN [Concomitant]

REACTIONS (3)
  - ATRIAL FIBRILLATION [None]
  - DYSPEPSIA [None]
  - FEELING ABNORMAL [None]
